FAERS Safety Report 8957244 (Version 2)
Quarter: 2013Q1

REPORT INFORMATION
  Report Type: Report from Study
  Country: JP (occurrence: JP)
  Receive Date: 20121211
  Receipt Date: 20130301
  Transmission Date: 20140127
  Serious: Yes (Death)
  Sender: FDA-Public Use
  Company Number: JP-ROCHE-1166701

PATIENT
  Age: 81 Year
  Sex: Male
  Weight: 47 kg

DRUGS (13)
  1. OMALIZUMAB [Suspect]
     Indication: ASTHMA
     Route: 058
     Dates: start: 20110916, end: 20120312
  2. THEOPHYLLINE [Concomitant]
     Route: 065
     Dates: start: 20120429
  3. PREDONINE [Concomitant]
     Route: 065
     Dates: start: 20050310, end: 20120429
  4. MEPTIN [Concomitant]
     Route: 065
     Dates: start: 20120329, end: 20120429
  5. SPIRIVA [Concomitant]
     Route: 065
     Dates: start: 20050324, end: 20120429
  6. MUCOSOLVAN [Concomitant]
     Route: 065
     Dates: end: 20120429
  7. VASOLAN [Concomitant]
     Route: 065
     Dates: end: 20120429
  8. SENNOSIDE [Concomitant]
     Route: 065
     Dates: start: 20060329, end: 20120429
  9. MAGLAX [Concomitant]
     Route: 065
     Dates: start: 20111006, end: 20120429
  10. ALDACTONE [Concomitant]
     Route: 065
     Dates: start: 20111006, end: 20120429
  11. LASIX [Concomitant]
     Route: 065
     Dates: start: 20111006, end: 20120429
  12. AMLODIN [Concomitant]
     Route: 065
     Dates: start: 20111006, end: 20120429
  13. DEPAS [Concomitant]
     Route: 065
     Dates: end: 20120429

REACTIONS (1)
  - Pneumonia [Fatal]
